FAERS Safety Report 8360736-7 (Version None)
Quarter: 2012Q2

REPORT INFORMATION
  Report Type: 
  Country: None (occurrence: None)
  Receive Date: 20120515
  Receipt Date: 20120507
  Transmission Date: 20120825
  Serious: No
  Sender: FDA-Public Use
  Company Number: US-ASTRAZENECA-2012SE29565

PATIENT
  Age: 49 Year
  Sex: Male

DRUGS (1)
  1. NEXIUM [Suspect]
     Route: 048

REACTIONS (4)
  - SENSATION OF FOREIGN BODY [None]
  - MUSCULOSKELETAL PAIN [None]
  - GASTROOESOPHAGEAL REFLUX DISEASE [None]
  - INTENTIONAL DRUG MISUSE [None]
